FAERS Safety Report 8398440 (Version 6)
Quarter: 2013Q1

REPORT INFORMATION
  Report Type: Report from Study
  Country: KR (occurrence: KR)
  Receive Date: 20120209
  Receipt Date: 20130322
  Transmission Date: 20140127
  Serious: Yes (Death, Hospitalization)
  Sender: FDA-Public Use
  Company Number: KR-ROCHE-1036367

PATIENT
  Age: 67 Year
  Sex: Male
  Weight: 55 kg

DRUGS (68)
  1. PERTUZUMAB [Suspect]
     Indication: GASTRIC CANCER
     Dosage: LOADING DOSE
     Route: 042
     Dates: start: 20111221
  2. PERTUZUMAB [Suspect]
     Dosage: DATE OF MOST RECENT DOSE PRIOR TO SAE: 18/JAN/2012,
     Route: 042
  3. TRASTUZUMAB [Suspect]
     Indication: GASTRIC CANCER
     Dosage: LOADING DOSE
     Route: 042
     Dates: start: 20111221
  4. TRASTUZUMAB [Suspect]
     Dosage: DATE OF MOST RECENT DOSE PRIOR TO SAE: 18/JAN/2012, 330 MG
     Route: 042
  5. CISPLATIN [Suspect]
     Indication: GASTRIC CANCER
     Dosage: DATE OF MOST RECENT DOSE PRIOR TO SAE: 18/JAN/2012, 80MG/M2
     Route: 042
     Dates: start: 20111221
  6. CAPECITABINE [Suspect]
     Indication: GASTRIC CANCER
     Dosage: DATE OF MOST RECENT DOSE PRIOR TO SAE: 31/JAN/2012
     Route: 048
     Dates: start: 20111221
  7. APREPITANT [Concomitant]
     Indication: NAUSEA
     Route: 048
     Dates: start: 20111221, end: 20120118
  8. APREPITANT [Concomitant]
     Indication: VOMITING
     Route: 048
     Dates: start: 20111222, end: 20120120
  9. RAMOSETRON [Concomitant]
     Indication: NAUSEA
     Route: 042
     Dates: start: 20111221, end: 20120118
  10. RAMOSETRON [Concomitant]
     Indication: VOMITING
  11. DEXAMETHASONE [Concomitant]
     Indication: NAUSEA
     Route: 042
     Dates: start: 20111221, end: 20120118
  12. DEXAMETHASONE [Concomitant]
     Indication: VOMITING
     Route: 048
     Dates: start: 20111222, end: 20120121
  13. CHLORPHENIRAMINE [Concomitant]
     Indication: HYPERSENSITIVITY
     Route: 042
     Dates: start: 20111221, end: 20120118
  14. RANITIDINE [Concomitant]
     Indication: GASTRITIS
     Route: 048
     Dates: start: 20111222, end: 20120121
  15. FAMOTIDINE [Concomitant]
     Indication: DIARRHOEA
     Dosage: DOSE: 1AMPULE(S)
     Route: 042
     Dates: start: 20120104, end: 20120104
  16. LOPERAMIDE OXIDE [Concomitant]
     Indication: DIARRHOEA
     Route: 048
     Dates: start: 20120103, end: 20120109
  17. ULTRACET [Concomitant]
     Indication: ABDOMINAL PAIN
     Route: 048
     Dates: start: 20120108, end: 20120109
  18. MEGESTROL [Concomitant]
     Indication: DECREASED APPETITE
     Route: 048
     Dates: start: 20111222, end: 20120201
  19. ARTEMISIA ASIATICA [Concomitant]
     Indication: DYSPEPSIA
     Route: 048
     Dates: start: 20120110, end: 20120201
  20. LACTOBACILLUS ACIDOPHILUS [Concomitant]
     Indication: DIARRHOEA
     Route: 048
     Dates: start: 20120110, end: 20120201
  21. POTASSIUM CHLORIDE [Concomitant]
     Indication: ELECTROLYTE IMBALANCE
     Route: 042
     Dates: start: 20120118, end: 20120118
  22. POTASSIUM CHLORIDE [Concomitant]
     Indication: HYPOKALAEMIA
     Route: 048
     Dates: start: 20120116, end: 20120123
  23. POTASSIUM CHLORIDE [Concomitant]
     Route: 042
     Dates: start: 20120204, end: 20120204
  24. POTASSIUM CHLORIDE [Concomitant]
     Route: 042
     Dates: start: 20120205, end: 20120206
  25. POTASSIUM CHLORIDE [Concomitant]
     Route: 042
     Dates: start: 20120208, end: 20120208
  26. POTASSIUM CHLORIDE [Concomitant]
     Route: 042
     Dates: start: 20120217, end: 20120218
  27. MAGNESIUM SULFATE [Concomitant]
     Indication: ELECTROLYTE IMBALANCE
     Route: 042
     Dates: start: 20120118, end: 20120118
  28. SODIUM BICARBONATE [Concomitant]
     Indication: STOMATITIS
     Route: 050
     Dates: start: 20111227, end: 20120214
  29. JOULIE^S SOLUTION [Concomitant]
     Indication: HYPOPHOSPHATAEMIA
     Route: 048
     Dates: start: 20120116, end: 20120123
  30. POTASSIUM PHOSPHATE, MONOBASIC [Concomitant]
     Indication: HYPOPHOSPHATAEMIA
     Dosage: DOSE: 0.5 AMPULE(S)
     Route: 042
     Dates: start: 20120118, end: 20120119
  31. POTASSIUM PHOSPHATE, MONOBASIC [Concomitant]
     Dosage: DOSE: 0.5 AMPULE(S)
     Route: 042
     Dates: start: 20120201, end: 20120201
  32. POTASSIUM PHOSPHATE, MONOBASIC [Concomitant]
     Route: 042
     Dates: start: 20120203, end: 20120205
  33. POTASSIUM PHOSPHATE, MONOBASIC [Concomitant]
     Route: 042
     Dates: start: 20120206, end: 20120207
  34. POTASSIUM PHOSPHATE, MONOBASIC [Concomitant]
     Route: 042
     Dates: start: 20120208, end: 20120208
  35. POTASSIUM PHOSPHATE, MONOBASIC [Concomitant]
     Route: 042
     Dates: start: 20120209, end: 20120209
  36. POTASSIUM PHOSPHATE, MONOBASIC [Concomitant]
     Route: 042
     Dates: start: 20120210, end: 20120211
  37. POTASSIUM PHOSPHATE, MONOBASIC [Concomitant]
     Route: 042
     Dates: start: 20120212, end: 20120212
  38. POTASSIUM PHOSPHATE, MONOBASIC [Concomitant]
     Route: 042
     Dates: start: 20120213, end: 20120215
  39. POTASSIUM PHOSPHATE, MONOBASIC [Concomitant]
     Route: 042
     Dates: start: 20120216, end: 20120218
  40. ESOMEPRAZOLE [Concomitant]
     Indication: STOMATITIS
     Route: 042
     Dates: start: 20120201, end: 20120214
  41. ESOMEPRAZOLE [Concomitant]
     Indication: UPPER GASTROINTESTINAL HAEMORRHAGE
     Route: 042
     Dates: start: 20120221, end: 20120221
  42. ESOMEPRAZOLE [Concomitant]
     Route: 042
     Dates: start: 20120215, end: 20120220
  43. ESOMEPRAZOLE [Concomitant]
     Route: 042
     Dates: start: 20120222, end: 20120223
  44. TRAMADOL HCL [Concomitant]
     Indication: STOMATITIS
     Dosage: DOSE: 1 AMPULE(S)
     Route: 042
     Dates: start: 20120201, end: 20120210
  45. TRAMADOL HCL [Concomitant]
     Dosage: 1 AMPULE
     Route: 042
     Dates: start: 20120215, end: 20120220
  46. LENOGRASTIM [Concomitant]
     Indication: FEBRILE NEUTROPENIA
     Dosage: DOSE: 1 AMPULE(S)
     Route: 058
     Dates: start: 20120202, end: 20120203
  47. ALBUMIN [Concomitant]
     Indication: HYPOALBUMINAEMIA
     Route: 042
     Dates: start: 20120202, end: 20120202
  48. ALBUMIN [Concomitant]
     Route: 042
     Dates: start: 20120210, end: 20120210
  49. ALBUMIN [Concomitant]
     Route: 042
     Dates: start: 20120220, end: 20120220
  50. ALBUMIN [Concomitant]
     Route: 042
     Dates: start: 20120211, end: 20120213
  51. MORPHINE HCL [Concomitant]
     Indication: STOMATITIS
     Dosage: DOSE: 0.3 AMPULE(S)
     Route: 042
     Dates: start: 20120202, end: 20120202
  52. CHLORPHENIRAMINE [Concomitant]
     Indication: ADVERSE DRUG REACTION
     Route: 042
     Dates: start: 20120211, end: 20120219
  53. FRESH FROZEN PLASMA [Concomitant]
     Indication: INTERNATIONAL NORMALISED RATIO INCREASED
     Dosage: DOSE: 3 UNIT(S)
     Route: 042
     Dates: start: 20120214, end: 20120214
  54. FRESH FROZEN PLASMA [Concomitant]
     Dosage: 2 UNITS
     Route: 042
     Dates: start: 20120221, end: 20120222
  55. DIHYDROCODEINE BITARTRATE [Concomitant]
     Indication: UPPER RESPIRATORY TRACT INFECTION
     Route: 048
     Dates: start: 20120214, end: 20120215
  56. PETHIDINE HCL [Concomitant]
     Indication: BRONCHOSCOPY
     Route: 042
     Dates: start: 20120207, end: 20120207
  57. PETHIDINE HCL [Concomitant]
     Route: 042
     Dates: start: 20120214, end: 20120214
  58. PETHIDINE HCL [Concomitant]
     Route: 030
     Dates: start: 20120214, end: 20120214
  59. TETRACOSACTRIN [Concomitant]
     Dosage: DOSE: 1 AMPULE(S)
     Route: 042
     Dates: start: 20120209, end: 20120209
  60. METHYLPREDNISOLONE SODIUM SUCCINATE [Concomitant]
     Indication: ADVERSE DRUG REACTION
     Route: 042
     Dates: start: 20120211, end: 20120220
  61. KETOPROFEN [Concomitant]
     Indication: PAIN
     Route: 062
     Dates: start: 20120210, end: 20120215
  62. PHYTONADIONE [Concomitant]
     Indication: INTERNATIONAL NORMALISED RATIO INCREASED
     Route: 042
     Dates: start: 20120213, end: 20120216
  63. BISACODYL [Concomitant]
     Indication: CONSTIPATION
     Route: 054
     Dates: start: 20120217, end: 20120217
  64. TRANEXAMIC ACID [Concomitant]
     Indication: INTERNATIONAL NORMALISED RATIO INCREASED
     Dosage: 1 AMPULE
     Route: 042
     Dates: start: 20120214, end: 20120216
  65. REMIFENTANIL [Concomitant]
     Indication: PNEUMONIA FUNGAL
     Route: 042
     Dates: start: 20120220, end: 20120220
  66. FENTANYL CITRATE [Concomitant]
     Indication: PNEUMONIA FUNGAL
     Dosage: DOSE: 1 AMPULE(S)
     Route: 042
     Dates: start: 20120220, end: 20120220
  67. RED BLOOD CELLS [Concomitant]
     Indication: ANAEMIA
     Dosage: 4 UNITS
     Route: 042
     Dates: start: 20120221, end: 20120221
  68. MIDAZOLAM HYDROCHLORIDE [Concomitant]
     Indication: SEDATION
     Route: 042
     Dates: start: 20120222, end: 20120222

REACTIONS (3)
  - Pneumonia fungal [Fatal]
  - Fatigue [Not Recovered/Not Resolved]
  - Renal failure acute [Not Recovered/Not Resolved]
